FAERS Safety Report 15225251 (Version 1)
Quarter: 2018Q3

REPORT INFORMATION
  Report Type: Spontaneous
  Country: GB (occurrence: GB)
  Receive Date: 20180801
  Receipt Date: 20180801
  Transmission Date: 20181010
  Serious: Yes (Other)
  Sender: FDA-Public Use
  Company Number: GB-SUN PHARMACEUTICAL INDUSTRIES LTD-2018RR-180028

PATIENT
  Age: 24 Year
  Sex: Female
  Weight: 63.5 kg

DRUGS (3)
  1. PROPANOL [Concomitant]
     Active Substance: PROPRANOLOL HYDROCHLORIDE
     Indication: PRODUCT USED FOR UNKNOWN INDICATION
     Dosage: ()
     Route: 065
  2. CITALOPRAM [Suspect]
     Active Substance: CITALOPRAM HYDROBROMIDE
     Indication: PRODUCT USED FOR UNKNOWN INDICATION
     Dosage: ()
     Route: 065
  3. NAPROXEN. [Suspect]
     Active Substance: NAPROXEN
     Indication: LIGAMENT SPRAIN
     Route: 048
     Dates: start: 20180701, end: 20180702

REACTIONS (5)
  - Abdominal pain upper [Not Recovered/Not Resolved]
  - Somnolence [Unknown]
  - Labelled drug-drug interaction medication error [Unknown]
  - Malaise [Unknown]
  - Back pain [Recovering/Resolving]

NARRATIVE: CASE EVENT DATE: 20180702
